FAERS Safety Report 21055475 (Version 3)
Quarter: 2022Q3

REPORT INFORMATION
  Report Type: Report from Study
  Country: GB (occurrence: GB)
  Receive Date: 20220708
  Receipt Date: 20220806
  Transmission Date: 20221027
  Serious: Yes (Hospitalization)
  Sender: FDA-Public Use
  Company Number: GB-JNJFOC-20220700840

PATIENT
  Age: 16 Year
  Sex: Male
  Weight: 43.5 kg

DRUGS (9)
  1. REMICADE [Suspect]
     Active Substance: INFLIXIMAB
     Indication: Inflammatory bowel disease
     Route: 041
     Dates: end: 20170703
  2. CLOBAZAM [Concomitant]
     Active Substance: CLOBAZAM
  3. ADALIMUMAB [Concomitant]
     Active Substance: ADALIMUMAB
  4. DICYCLOMINE HYDROCHLORIDE [Concomitant]
     Active Substance: DICYCLOMINE HYDROCHLORIDE
  5. LANSOPRAZOLE [Concomitant]
     Active Substance: LANSOPRAZOLE
  6. MOVICOL READY TO TAKE [Concomitant]
  7. MORPHINE SULFATE [Concomitant]
     Active Substance: MORPHINE SULFATE
  8. CARBAMAZEPINE [Concomitant]
     Active Substance: CARBAMAZEPINE
  9. HUMIRA [Concomitant]
     Active Substance: ADALIMUMAB

REACTIONS (1)
  - Eosinophilic oesophagitis [Recovered/Resolved]

NARRATIVE: CASE EVENT DATE: 20210730
